FAERS Safety Report 22283841 (Version 3)
Quarter: 2023Q2

REPORT INFORMATION
  Report Type: Spontaneous
  Country: BE (occurrence: BE)
  Receive Date: 20230504
  Receipt Date: 20230608
  Transmission Date: 20230721
  Serious: Yes (Hospitalization)
  Sender: FDA-Public Use
  Company Number: BE-AMGEN-BELNI2023074910

PATIENT
  Age: 59 Year
  Sex: Female

DRUGS (17)
  1. XGEVA [Suspect]
     Active Substance: DENOSUMAB
     Indication: Bone disorder
     Dosage: 120 MILLIGRAM, QMO
     Route: 058
     Dates: start: 20230120
  2. XGEVA [Suspect]
     Active Substance: DENOSUMAB
     Indication: Off label use
  3. ALECTINIB [Suspect]
     Active Substance: ALECTINIB
     Indication: Non-small cell lung cancer
     Dosage: 600 MILLIGRAM
     Route: 048
     Dates: start: 20230120
  4. FENTANYL [Concomitant]
     Active Substance: FENTANYL
     Indication: Pain
     Dosage: 75 MICROGRAM, QD
     Dates: start: 20230320, end: 20230422
  5. FENTANYL [Concomitant]
     Active Substance: FENTANYL
     Dosage: 75 MICROGRAM
     Dates: start: 20230426
  6. CALCIUM CARBONATE\CHOLECALCIFEROL [Concomitant]
     Active Substance: CALCIUM CARBONATE\CHOLECALCIFEROL
     Dosage: 1000 MILLIGRAM, QD
     Dates: start: 20230120
  7. MAGNESIUM [Concomitant]
     Active Substance: MAGNESIUM
     Dosage: 450 MILLIGRAM, QD
  8. DAFALGAN [Concomitant]
     Active Substance: ACETAMINOPHEN
     Indication: Pain
     Dosage: 1 GRAM
  9. OXYCODONE HYDROCHLORIDE [Concomitant]
     Active Substance: OXYCODONE HYDROCHLORIDE
     Indication: Pain
     Dosage: 5 MILLIGRAM
  10. TRAMADOL HYDROCHLORIDE [Concomitant]
     Active Substance: TRAMADOL HYDROCHLORIDE
     Indication: Pain
     Dosage: MEDICATION DOSE FORM: OTHERMEDICATION DOSE: 40 OTHER
  11. FENTANYL [Concomitant]
     Active Substance: FENTANYL
     Indication: Pain
     Dosage: 50 MICROGRAM, QD (MEDICATION DOSE FORM: PATCH)
     Dates: end: 20230316
  12. FENTANYL [Concomitant]
     Active Substance: FENTANYL
     Dosage: 50 MICROGRAM, TID
     Dates: start: 20230423, end: 20230425
  13. PRIMPERAN [Concomitant]
     Active Substance: METOCLOPRAMIDE HYDROCHLORIDE
     Indication: Nausea
     Dosage: 10 MILLILITER (MEDICATION DOSE FORM: LIQUID)
  14. AMOXICILLIN [Concomitant]
     Active Substance: AMOXICILLIN
     Dosage: 1000 MILLIGRAM
     Dates: start: 20230422, end: 20230426
  15. ACETAMINOPHEN [Concomitant]
     Active Substance: ACETAMINOPHEN
     Dosage: 1 GRAM
     Dates: start: 20230422, end: 20230426
  16. ENOXAPARIN SODIUM [Concomitant]
     Active Substance: ENOXAPARIN SODIUM
     Dosage: 40 MILLIGRAM, QD
     Dates: start: 20230422, end: 20230430
  17. ENOXAPARIN SODIUM [Concomitant]
     Active Substance: ENOXAPARIN SODIUM
     Dosage: 40 MILLIGRAM
     Dates: start: 20230519

REACTIONS (10)
  - Large intestine perforation [Recovered/Resolved]
  - General physical health deterioration [Recovered/Resolved]
  - Hypocalcaemia [Recovered/Resolved]
  - Off label use [Unknown]
  - Overflow diarrhoea [Not Recovered/Not Resolved]
  - Chest pain [Not Recovered/Not Resolved]
  - Decreased appetite [Not Recovered/Not Resolved]
  - Constipation [Not Recovered/Not Resolved]
  - Diarrhoea [Not Recovered/Not Resolved]
  - Bone pain [Not Recovered/Not Resolved]

NARRATIVE: CASE EVENT DATE: 20230120
